FAERS Safety Report 6358333-8 (Version None)
Quarter: 2009Q3

REPORT INFORMATION
  Report Type: 
  Country: None (occurrence: None)
  Receive Date: 20090916
  Receipt Date: 20090911
  Transmission Date: 20100115
  Serious: Yes (Hospitalization)
  Sender: FDA-Public Use
  Company Number: US-GILEAD-2009-0024139

PATIENT
  Sex: Female
  Weight: 53.027 kg

DRUGS (18)
  1. LETAIRIS [Suspect]
     Indication: PULMONARY ARTERIAL HYPERTENSION
     Route: 048
     Dates: start: 20070808
  2. REVATIO [Concomitant]
  3. COUMADIN [Concomitant]
  4. LOVENOX [Concomitant]
  5. LASIX [Concomitant]
  6. DIGOXIN [Concomitant]
  7. FLOVENT [Concomitant]
  8. VENTOLIN [Concomitant]
  9. OXYGEN [Concomitant]
  10. LAMICTAL [Concomitant]
  11. CONCERTA [Concomitant]
  12. LITHIUM CARBONATE [Concomitant]
  13. FOLIC ACID [Concomitant]
  14. MULTI-VITAMIN [Concomitant]
  15. SODIUM CHLORIDE 0.9% [Concomitant]
  16. FERROUS SULFATE TAB [Concomitant]
  17. STERILE WATER [Concomitant]
  18. MIRALAX [Concomitant]

REACTIONS (1)
  - ARTERIOVENOUS MALFORMATION [None]
